FAERS Safety Report 18059206 (Version 1)
Quarter: 2020Q3

REPORT INFORMATION
  Report Type: Spontaneous
  Country: US (occurrence: US)
  Receive Date: 20200722
  Receipt Date: 20200722
  Transmission Date: 20201103
  Serious: No
  Sender: FDA-Public Use
  Company Number: None

PATIENT
  Age: 64 Year
  Sex: Male
  Weight: 83.91 kg

DRUGS (2)
  1. TRAZODONE (TRAZODONE HCL 150MG TAB) [Suspect]
     Active Substance: TRAZODONE HYDROCHLORIDE
     Indication: DEPRESSION
     Dosage: OTHER FREQUENCY:AT BEDTIME;?
     Route: 048
     Dates: start: 20190701, end: 20200602
  2. TRAZODONE (TRAZODONE HCL 150MG TAB) [Suspect]
     Active Substance: TRAZODONE HYDROCHLORIDE
     Indication: INSOMNIA
     Dosage: OTHER FREQUENCY:AT BEDTIME;?
     Route: 048
     Dates: start: 20190701, end: 20200602

REACTIONS (3)
  - Drug ineffective [None]
  - Therapy cessation [None]
  - Alopecia [None]

NARRATIVE: CASE EVENT DATE: 20200602
